FAERS Safety Report 13647339 (Version 1)
Quarter: 2017Q2

REPORT INFORMATION
  Report Type: Spontaneous
  Country: US (occurrence: US)
  Receive Date: 20170613
  Receipt Date: 20170613
  Transmission Date: 20170830
  Serious: No
  Sender: FDA-Public Use
  Company Number: None

PATIENT
  Age: 40 Year
  Sex: Female
  Weight: 64.92 kg

DRUGS (1)
  1. SUBOXONE [Suspect]
     Active Substance: BUPRENORPHINE HYDROCHLORIDE\NALOXONE HYDROCHLORIDE
     Indication: DRUG USE DISORDER
     Dosage: 16MG DAILY FILM- ORAL SUBLINGUAL
     Route: 060
     Dates: start: 20160630, end: 20170613

REACTIONS (8)
  - Rash [None]
  - Pruritus [None]
  - Lupus-like syndrome [None]
  - Arthralgia [None]
  - Dizziness [None]
  - Urticaria [None]
  - Peripheral swelling [None]
  - Vision blurred [None]

NARRATIVE: CASE EVENT DATE: 20170613
